FAERS Safety Report 21925914 (Version 3)
Quarter: 2023Q1

REPORT INFORMATION
  Report Type: Spontaneous
  Country: DE (occurrence: DE)
  Receive Date: 20230130
  Receipt Date: 20230306
  Transmission Date: 20230418
  Serious: Yes (Hospitalization, Other)
  Sender: FDA-Public Use
  Company Number: DE-002147023-NVSC2022DE264362

PATIENT
  Age: 16 Year

DRUGS (13)
  1. RISPERIDONE [Interacting]
     Active Substance: RISPERIDONE
     Indication: Product used for unknown indication
     Dosage: UNK
     Route: 065
  2. ARIPIPRAZOLE [Interacting]
     Active Substance: ARIPIPRAZOLE
     Indication: Antipsychotic therapy
     Dosage: UNK
     Route: 065
  3. ARIPIPRAZOLE [Interacting]
     Active Substance: ARIPIPRAZOLE
     Indication: Stereotypy
  4. ARIPIPRAZOLE [Interacting]
     Active Substance: ARIPIPRAZOLE
     Indication: Impulse-control disorder
  5. ARIPIPRAZOLE [Interacting]
     Active Substance: ARIPIPRAZOLE
     Indication: Intellectual disability
  6. MELPERONE [Interacting]
     Active Substance: MELPERONE
     Indication: Antipsychotic therapy
     Dosage: UNK
     Route: 065
  7. MELPERONE [Interacting]
     Active Substance: MELPERONE
     Indication: Stereotypy
  8. MELPERONE [Interacting]
     Active Substance: MELPERONE
     Indication: Impulse-control disorder
  9. MELPERONE [Interacting]
     Active Substance: MELPERONE
     Indication: Intellectual disability
  10. PIPAMPERONE [Interacting]
     Active Substance: PIPAMPERONE
     Indication: Antipsychotic therapy
     Dosage: UNK
     Route: 065
  11. PIPAMPERONE [Interacting]
     Active Substance: PIPAMPERONE
     Indication: Stereotypy
  12. PIPAMPERONE [Interacting]
     Active Substance: PIPAMPERONE
     Indication: Impulse-control disorder
  13. PIPAMPERONE [Interacting]
     Active Substance: PIPAMPERONE
     Indication: Intellectual disability

REACTIONS (4)
  - Drug interaction [Unknown]
  - Electrocardiogram QT prolonged [Unknown]
  - Salivary hypersecretion [Unknown]
  - Off label use [Unknown]
